FAERS Safety Report 24853516 (Version 2)
Quarter: 2025Q1

REPORT INFORMATION
  Report Type: Report from Study
  Country: CA (occurrence: CA)
  Receive Date: 20250117
  Receipt Date: 20250318
  Transmission Date: 20250408
  Serious: Yes (Other)
  Sender: TAKEDA
  Company Number: CA-TAKEDA-2025TUS004737

PATIENT
  Sex: Male

DRUGS (16)
  1. VEDOLIZUMAB [Suspect]
     Active Substance: VEDOLIZUMAB
     Indication: Colitis ulcerative
  2. GRAVOL [Concomitant]
     Active Substance: DIMENHYDRINATE
  3. NAPROXEN [Concomitant]
     Active Substance: NAPROXEN
  4. DEMEROL [Concomitant]
     Active Substance: MEPERIDINE HYDROCHLORIDE
  5. ASPIRIN [Concomitant]
     Active Substance: ASPIRIN
  6. LIPITOR [Concomitant]
     Active Substance: ATORVASTATIN CALCIUM
  7. ATENOLOL [Concomitant]
     Active Substance: ATENOLOL
  8. ATIVAN [Concomitant]
     Active Substance: LORAZEPAM
  9. ALLOPURINOL [Concomitant]
     Active Substance: ALLOPURINOL
  10. PREVACID [Concomitant]
     Active Substance: LANSOPRAZOLE
  11. DOMPERIDONE [Concomitant]
     Active Substance: DOMPERIDONE
  12. Salofalk [Concomitant]
  13. DICYCLOMINE [Concomitant]
     Active Substance: DICYCLOMINE HYDROCHLORIDE
  14. TYLENOL [Concomitant]
     Active Substance: ACETAMINOPHEN
  15. QUININE [Concomitant]
     Active Substance: QUININE
  16. NITROGLYCERIN [Concomitant]
     Active Substance: NITROGLYCERIN

REACTIONS (1)
  - Ear neoplasm malignant [Unknown]
